FAERS Safety Report 5818321-4 (Version None)
Quarter: 2008Q3

REPORT INFORMATION
  Report Type: 
  Country: None (occurrence: None)
  Receive Date: 20080716
  Receipt Date: 20080707
  Transmission Date: 20090109
  Serious: Yes (Other)
  Sender: FDA-Public Use
  Company Number: 2008AP001197

PATIENT
  Age: 64 Year
  Sex: Female

DRUGS (3)
  1. ZOLPIDEM TARTRATE [Suspect]
     Indication: ANALGESIA
     Dosage: 100 MG; TAB; PO; QD; 60 MG; TAB; PO; QD
     Route: 048
  2. VALPROATE SODIUM [Suspect]
  3. CARBAMAZEPINE [Concomitant]

REACTIONS (5)
  - CHEST PAIN [None]
  - DRUG INTERACTION [None]
  - PARAESTHESIA [None]
  - RASH [None]
  - VOMITING [None]
